FAERS Safety Report 7797026-7 (Version None)
Quarter: 2011Q4

REPORT INFORMATION
  Report Type: 
  Country: None (occurrence: None)
  Receive Date: 20111005
  Receipt Date: 20110929
  Transmission Date: 20120403
  Serious: Yes (Death, Other)
  Sender: FDA-Public Use
  Company Number: US-SANOFI-AVENTIS-2011SA063890

PATIENT
  Age: 78 Year
  Sex: Male

DRUGS (10)
  1. JEVTANA KIT [Suspect]
     Route: 041
     Dates: start: 20101022, end: 20101022
  2. JEVTANA KIT [Suspect]
     Route: 041
     Dates: start: 20101224, end: 20101224
  3. JEVTANA KIT [Suspect]
     Route: 041
     Dates: start: 20100910, end: 20100910
  4. JEVTANA KIT [Suspect]
     Route: 041
     Dates: start: 20100820, end: 20100820
  5. JEVTANA KIT [Suspect]
     Indication: PROSTATE CANCER
     Route: 041
     Dates: start: 20110114, end: 20110114
  6. JEVTANA KIT [Suspect]
     Route: 041
     Dates: start: 20101112, end: 20101112
  7. JEVTANA KIT [Suspect]
     Route: 041
     Dates: start: 20100730, end: 20100730
  8. JEVTANA KIT [Suspect]
     Route: 041
     Dates: start: 20100709, end: 20100709
  9. JEVTANA KIT [Suspect]
     Route: 041
     Dates: start: 20101203, end: 20101203
  10. JEVTANA KIT [Suspect]
     Route: 041
     Dates: start: 20101001, end: 20101001

REACTIONS (2)
  - DEATH [None]
  - DISEASE PROGRESSION [None]
